FAERS Safety Report 5373139-4 (Version None)
Quarter: 2007Q2

REPORT INFORMATION
  Report Type: 
  Country: None (occurrence: None)
  Receive Date: 20070626
  Receipt Date: 20070615
  Transmission Date: 20071010
  Serious: Yes (Hospitalization)
  Sender: FDA-Public Use
  Company Number: S07-USA-02642-01

PATIENT
  Age: 49 Year
  Sex: Male

DRUGS (9)
  1. CELEXA [Suspect]
     Indication: DEPRESSION
  2. PEGASYS [Suspect]
     Indication: HEPATITIS C
     Dosage: 45 MCG SC
     Route: 058
     Dates: start: 20061015, end: 20070511
  3. EFFEXOR [Concomitant]
     Dates: end: 20070415
  4. BACLOFEN [Suspect]
     Dates: start: 20070417
  5. OPIATE (NOS) [Suspect]
  6. WELLBUTRIN [Suspect]
     Indication: DEPRESSION
     Dosage: 150 MG QD PO
     Route: 048
     Dates: start: 20070417
  7. AZITHROMYCIN [Concomitant]
  8. HYDROCHLOROTHIAZIDE [Concomitant]
  9. TOPROL-XL [Concomitant]

REACTIONS (31)
  - AGGRESSION [None]
  - AGITATION [None]
  - ANXIETY [None]
  - BLOOD BICARBONATE DECREASED [None]
  - BLOOD PRESSURE INCREASED [None]
  - BLOOD UREA INCREASED [None]
  - DELIRIUM [None]
  - DEPRESSION [None]
  - DRUG INEFFECTIVE [None]
  - DRUG INTERACTION [None]
  - DRUG WITHDRAWAL SYNDROME [None]
  - DYSKINESIA [None]
  - FATIGUE [None]
  - FREQUENT BOWEL MOVEMENTS [None]
  - HAEMATOCHEZIA [None]
  - HEART RATE INCREASED [None]
  - INTERNATIONAL NORMALISED RATIO INCREASED [None]
  - LEUKOPENIA [None]
  - MENTAL DISORDER [None]
  - MENTAL STATUS CHANGES [None]
  - MUSCLE RIGIDITY [None]
  - OVERDOSE [None]
  - PROTHROMBIN TIME PROLONGED [None]
  - RECTAL HAEMORRHAGE [None]
  - RED BLOOD CELL COUNT DECREASED [None]
  - RESPIRATORY DISTRESS [None]
  - RESTLESSNESS [None]
  - SINUS TACHYCARDIA [None]
  - THROMBOCYTOPENIA [None]
  - TREMOR [None]
  - WHITE BLOOD CELL COUNT DECREASED [None]
